FAERS Safety Report 13705589 (Version 1)
Quarter: 2017Q2

REPORT INFORMATION
  Report Type: Spontaneous
  Country: US (occurrence: US)
  Receive Date: 20170630
  Receipt Date: 20170630
  Transmission Date: 20170830
  Serious: Yes (Other)
  Sender: FDA-Public Use
  Company Number: US-ELI_LILLY_AND_COMPANY-US201706008554

PATIENT
  Sex: Female
  Weight: 131.52 kg

DRUGS (5)
  1. NIASPAN [Suspect]
     Active Substance: NIACIN
     Indication: BLOOD CHOLESTEROL ABNORMAL
     Dosage: UNK, UNKNOWN
     Route: 065
  2. HUMALOG [Suspect]
     Active Substance: INSULIN LISPRO
     Indication: TYPE 2 DIABETES MELLITUS
     Dosage: 45 U, TID
     Route: 058
     Dates: start: 2009
  3. HUMALOG [Suspect]
     Active Substance: INSULIN LISPRO
     Dosage: UNK UNK, EACH EVENING
     Route: 058
     Dates: start: 2009
  4. DIAVAN [Suspect]
     Active Substance: ASCORBIC ACID\CHROMIUM\SELENIUM\VANADYL SULFATE
     Indication: BLOOD PRESSURE ABNORMAL
     Dosage: UNK, UNKNOWN
     Route: 065
  5. TOUJEO [Concomitant]
     Active Substance: INSULIN GLARGINE
     Indication: TYPE 2 DIABETES MELLITUS
     Dosage: 68 U, BID
     Route: 065

REACTIONS (8)
  - Immune system disorder [Unknown]
  - Injection site pain [Recovered/Resolved]
  - Dyspnoea [Not Recovered/Not Resolved]
  - Burn of internal organs [Unknown]
  - Cough [Not Recovered/Not Resolved]
  - Injection site haemorrhage [Recovered/Resolved]
  - Weight increased [Not Recovered/Not Resolved]
  - Burning sensation [Recovering/Resolving]

NARRATIVE: CASE EVENT DATE: 2009
